FAERS Safety Report 7432059-1 (Version None)
Quarter: 2011Q2

REPORT INFORMATION
  Report Type: 
  Country: None (occurrence: None)
  Receive Date: 20110422
  Receipt Date: 20110413
  Transmission Date: 20111010
  Serious: Yes (Other)
  Sender: FDA-Public Use
  Company Number: RU-ELI_LILLY_AND_COMPANY-RU201103001961

PATIENT
  Sex: Male

DRUGS (5)
  1. GLURENORM [Concomitant]
     Dosage: 30 MG, 2/D
     Route: 065
     Dates: start: 20050101
  2. CONCOR [Concomitant]
     Dosage: 10 MG, DAILY (1/D)
     Route: 065
     Dates: start: 20070101
  3. BYETTA [Suspect]
     Dosage: 5 UG, UNKNOWN
     Route: 065
  4. BYETTA [Suspect]
     Dosage: 10 UG, DAILY (1/D)
     Route: 065
     Dates: start: 20110204
  5. BYETTA [Suspect]
     Indication: TYPE 2 DIABETES MELLITUS
     Dosage: 5 UG, DAILY (1/D)
     Route: 065
     Dates: start: 20110101, end: 20110203

REACTIONS (2)
  - HYPERAEMIA [None]
  - DERMATITIS ALLERGIC [None]
